FAERS Safety Report 11582074 (Version 1)
Quarter: 2015Q4

REPORT INFORMATION
  Report Type: Spontaneous
  Country: US (occurrence: US)
  Receive Date: 20151001
  Receipt Date: 20151001
  Transmission Date: 20160304
  Serious: No
  Sender: FDA-Public Use
  Company Number: US-ROCHE-677989

PATIENT
  Sex: Female

DRUGS (2)
  1. RIBAVIRIN. [Suspect]
     Active Substance: RIBAVIRIN
     Indication: HEPATITIS C
     Dosage: DIVIDED DOSES
     Route: 065
  2. PEGASYS [Suspect]
     Active Substance: PEGINTERFERON ALFA-2A
     Indication: HEPATITIS C
     Dosage: PRE FILLED SYRINGE
     Route: 065

REACTIONS (8)
  - Insomnia [Unknown]
  - Influenza [Unknown]
  - Pruritus [Unknown]
  - Anger [Unknown]
  - Cough [Unknown]
  - Depression [Not Recovered/Not Resolved]
  - Ear discomfort [Unknown]
  - Decreased appetite [Unknown]
